FAERS Safety Report 9190729 (Version 1)
Quarter: 2013Q1

REPORT INFORMATION
  Report Type: Report from Study
  Country: DE (occurrence: DE)
  Receive Date: 20130326
  Receipt Date: 20130326
  Transmission Date: 20140127
  Serious: Yes (Other)
  Sender: FDA-Public Use
  Company Number: DE-UCBSA-081114

PATIENT
  Sex: Female

DRUGS (2)
  1. LEVETIRACETAM [Suspect]
     Indication: EPILEPSY
     Dosage: DAILY DOSE : 4000
  2. LAMOTRIGINE [Concomitant]
     Indication: EPILEPSY

REACTIONS (3)
  - Abortion spontaneous [Unknown]
  - Overdose [Unknown]
  - Pregnancy [Recovered/Resolved]
